FAERS Safety Report 8916139 (Version 5)
Quarter: 2013Q4

REPORT INFORMATION
  Report Type: Spontaneous
  Country: US (occurrence: US)
  Receive Date: 20121120
  Receipt Date: 20131008
  Transmission Date: 20140711
  Serious: Yes (Death, Hospitalization)
  Sender: FDA-Public Use
  Company Number: US-GLAXOSMITHKLINE-A0640801A

PATIENT
  Age: 22 Year
  Sex: Male
  Weight: 70.8 kg

DRUGS (11)
  1. FLOLAN [Suspect]
     Indication: PULMONARY ARTERIAL HYPERTENSION
     Dosage: 60NGKM CONTINUOUS
     Route: 042
     Dates: start: 20001114
  2. LASIX [Concomitant]
     Dosage: 20MG PER DAY
     Route: 048
  3. ASCORBIC ACID [Concomitant]
     Dosage: 1000MG PER DAY
     Route: 048
  4. ZINC GLUCONATE [Concomitant]
     Dosage: 60MG PER DAY
     Route: 048
  5. TYLENOL [Concomitant]
     Dosage: 500MG AS REQUIRED
     Route: 048
  6. B-COMPLEX [Concomitant]
     Dosage: 1CAP PER DAY
     Route: 048
  7. IMODIUM AD [Concomitant]
     Dosage: 1MG AS REQUIRED
     Route: 048
  8. COUMADIN [Concomitant]
     Dosage: 2MG PER DAY
     Route: 048
  9. LUVOX [Concomitant]
     Dosage: 100MG PER DAY
     Route: 048
  10. NEOSPORIN [Concomitant]
     Route: 061
  11. BACITRACIN + NEOMYCIN + POLYMIXIN [Concomitant]
     Route: 061

REACTIONS (11)
  - Lung infection [Unknown]
  - Hospitalisation [Unknown]
  - Death [Fatal]
  - Device occlusion [Unknown]
  - Device alarm issue [Unknown]
  - Medical device complication [Unknown]
  - Pericardial effusion [Unknown]
  - Pericardial drainage [Unknown]
  - General physical health deterioration [Unknown]
  - Adverse event [Unknown]
  - Product quality issue [Unknown]
